FAERS Safety Report 14701676 (Version 1)
Quarter: 2018Q1

REPORT INFORMATION
  Report Type: Report from Study
  Country: GB (occurrence: GB)
  Receive Date: 20180331
  Receipt Date: 20180331
  Transmission Date: 20180509
  Serious: Yes (Other)
  Sender: FDA-Public Use
  Company Number: GB-ROCHE-2047302

PATIENT
  Sex: Female

DRUGS (1)
  1. ROACTEMRA [Suspect]
     Active Substance: TOCILIZUMAB
     Indication: RHEUMATOID ARTHRITIS
     Route: 058
     Dates: start: 20150821

REACTIONS (7)
  - Diplopia [Unknown]
  - Skull fracture [Unknown]
  - Memory impairment [Unknown]
  - Amnesia [Unknown]
  - Head injury [Unknown]
  - Facial bones fracture [Unknown]
  - Syncope [Unknown]
